FAERS Safety Report 4833848-X (Version None)
Quarter: 2005Q4

REPORT INFORMATION
  Report Type: 
  Country: None (occurrence: None)
  Receive Date: 20051118
  Receipt Date: 20051118
  Transmission Date: 20060501
  Serious: Yes (Other)
  Sender: FDA-Public Use
  Company Number: None

PATIENT
  Age: 71 Year
  Sex: Female
  Weight: 54.4316 kg

DRUGS (1)
  1. CLARITIN [Suspect]
     Indication: RHINITIS ALLERGIC
     Dosage: ONE TABLET DAILY PO
     Route: 048
     Dates: start: 20050827, end: 20050903

REACTIONS (2)
  - EYE PAIN [None]
  - MEDICATION ERROR [None]
